FAERS Safety Report 4361034-9 (Version None)
Quarter: 2004Q2

REPORT INFORMATION
  Report Type: 
  Country: None (occurrence: None)
  Receive Date: 20040517
  Receipt Date: 20030918
  Transmission Date: 20050107
  Serious: Yes (Hospitalization)
  Sender: FDA-Public Use
  Company Number: 2003-106487-NL

PATIENT
  Age: 79 Year
  Sex: Female

DRUGS (12)
  1. MIRTAZAPINE [Suspect]
     Indication: DEPRESSION
     Dosage: 7.5 MG, ORAL
     Route: 048
     Dates: start: 20030404, end: 20030409
  2. MIRTAZAPINE [Suspect]
     Indication: INSOMNIA
     Dosage: 7.5 MG, ORAL
     Route: 048
     Dates: start: 20030404, end: 20030409
  3. ACETAMINOPHEN [Concomitant]
  4. EPINEPHRINE [Concomitant]
  5. ALENDRONATE SODIUM [Concomitant]
  6. ICAPS [Concomitant]
  7. LEVOTHYROXINE SODIUM [Concomitant]
  8. LORAZEPAM [Concomitant]
  9. METOCLOPRAMIDE HYDROCHLORIDE [Concomitant]
  10. CALCIUM CARBONATE [Concomitant]
  11. VITAMIN D [Concomitant]
  12. VITAMIN E [Concomitant]

REACTIONS (3)
  - CYANOSIS [None]
  - FEELING ABNORMAL [None]
  - TACHYCARDIA [None]
